FAERS Safety Report 10148985 (Version 2)
Quarter: 2014Q2

REPORT INFORMATION
  Report Type: Spontaneous
  Country: ES (occurrence: ES)
  Receive Date: 20140502
  Receipt Date: 20140505
  Transmission Date: 20141212
  Serious: Yes (Death, Hospitalization)
  Sender: FDA-Public Use
  Company Number: ES-ROCHE-1387593

PATIENT
  Age: 89 Year
  Sex: Female
  Weight: 60 kg

DRUGS (7)
  1. AVASTIN [Suspect]
     Indication: MACULAR DEGENERATION
     Dosage: FORM STRENGTH: 25 MG/ML
     Route: 031
     Dates: start: 20140221, end: 20140221
  2. SINTROM [Suspect]
     Indication: ATRIAL FIBRILLATION
     Dosage: DRUG REPORTED AS ^SINTROM 4 MG COMPRIMIDOS, 20 COMPRIMIDOS^
     Route: 048
  3. FUROSEMIDA [Concomitant]
     Indication: CARDIAC FAILURE CONGESTIVE
     Route: 048
     Dates: start: 2009
  4. LANACORDIN [Concomitant]
     Indication: ATRIAL FIBRILLATION
     Dosage: DRUG REPORTED AS ^LANACORDIN PEDIATRICO, 1 FRASCO DE 60 ML^
     Route: 048
     Dates: start: 2009
  5. PARACETAMOL [Concomitant]
     Route: 048
  6. ESOMEPRAZOL [Concomitant]
     Indication: PROPHYLAXIS AGAINST GASTROINTESTINAL ULCER
     Route: 048
     Dates: start: 2009
  7. CARVEDILOL [Concomitant]
     Indication: HYPERTENSION
     Route: 048
     Dates: start: 2009

REACTIONS (2)
  - Cerebral haemorrhage [Fatal]
  - Hypertensive crisis [Fatal]
